FAERS Safety Report 11914694 (Version 12)
Quarter: 2019Q3

REPORT INFORMATION
  Report Type: Report from Study
  Country: CO (occurrence: CO)
  Receive Date: 20160113
  Receipt Date: 20190808
  Transmission Date: 20191004
  Serious: Yes (Death, Life-Threatening, Hospitalization, Other)
  Sender: FDA-Public Use
  Company Number: PHHY2016CO003273

PATIENT
  Age: 56 Year
  Sex: Male
  Weight: 68 kg

DRUGS (5)
  1. REVOLADE [Suspect]
     Active Substance: ELTROMBOPAG
     Indication: IMMUNE THROMBOCYTOPENIC PURPURA
     Dosage: UNK
     Route: 048
  2. REVOLADE [Suspect]
     Active Substance: ELTROMBOPAG
     Indication: BLOOD DISORDER
     Dosage: 25 MG, TID
     Route: 048
     Dates: start: 20151026
  3. CYCLOSPORINE. [Concomitant]
     Active Substance: CYCLOSPORINE
     Indication: PRODUCT USED FOR UNKNOWN INDICATION
     Dosage: 50 MG, BID
     Route: 065
  4. REVOLADE [Suspect]
     Active Substance: ELTROMBOPAG
     Dosage: 75 MG, QD
     Route: 048
     Dates: end: 201904
  5. ROMIPLOSTIM [Suspect]
     Active Substance: ROMIPLOSTIM
     Indication: PRODUCT USED FOR UNKNOWN INDICATION
     Route: 065

REACTIONS (15)
  - Cough [Unknown]
  - Chills [Unknown]
  - Malaise [Unknown]
  - Back pain [Recovering/Resolving]
  - Headache [Unknown]
  - Oropharyngeal pain [Unknown]
  - Influenza [Unknown]
  - Dyspnoea [Unknown]
  - Dizziness [Unknown]
  - Death [Fatal]
  - Platelet count decreased [Not Recovered/Not Resolved]
  - Drug ineffective [Unknown]
  - Weight decreased [Unknown]
  - Aplasia [Unknown]
  - Transaminases increased [Unknown]

NARRATIVE: CASE EVENT DATE: 201603
